FAERS Safety Report 12055700 (Version 2)
Quarter: 2016Q1

REPORT INFORMATION
  Report Type: Report from Study
  Country: US (occurrence: US)
  Receive Date: 20160209
  Receipt Date: 20160210
  Transmission Date: 20160526
  Serious: Yes (Hospitalization, Other)
  Sender: FDA-Public Use
  Company Number: US-UCBSA-2016004383

PATIENT
  Age: 28 Year
  Sex: Male
  Weight: 48.9 kg

DRUGS (27)
  1. CERTOLIZUMAB PEGOL CD [Suspect]
     Active Substance: CERTOLIZUMAB PEGOL
     Indication: CROHN^S DISEASE
     Dosage: 400 MG, UNK
     Dates: start: 20120307, end: 20120926
  2. COLAZAL [Concomitant]
     Active Substance: BALSALAZIDE DISODIUM
     Indication: CROHN^S DISEASE
     Dosage: 2250 MG, 3X/DAY (TID) (750 MG CAP 3 CAPS TID)
     Route: 048
     Dates: start: 20120614, end: 20150331
  3. SALINE ORAL OTC [Concomitant]
     Active Substance: SODIUM CHLORIDE
     Dosage: UNK
  4. CERTOLIZUMAB PEGOL CD [Suspect]
     Active Substance: CERTOLIZUMAB PEGOL
     Dosage: 400 MG, UNK
     Dates: start: 20121122, end: 2015
  5. FLAGYL [Concomitant]
     Active Substance: METRONIDAZOLE\METRONIDAZOLE HYDROCHLORIDE
     Indication: CROHN^S DISEASE
     Dosage: UNK
     Dates: start: 20120614, end: 20120623
  6. DEXTROSE. [Concomitant]
     Active Substance: DEXTROSE
  7. DELTASONE [Concomitant]
     Active Substance: PREDNISONE
     Indication: CROHN^S DISEASE
     Dosage: UNK
     Dates: start: 20100523, end: 20100604
  8. FOSAMAX [Concomitant]
     Active Substance: ALENDRONATE SODIUM
     Indication: PRODUCT USED FOR UNKNOWN INDICATION
     Dosage: 70 MG, WEEKLY (QW)
     Route: 048
     Dates: start: 20120804
  9. ENTOCORT EC [Concomitant]
     Active Substance: BUDESONIDE
     Dosage: 9 MG, ONCE DAILY (QD) (3MG CAP 3 CAPS QD)
     Route: 048
     Dates: start: 20130123
  10. VITAMIN D [Concomitant]
     Active Substance: CHOLECALCIFEROL
     Indication: PRODUCT USED FOR UNKNOWN INDICATION
     Dosage: 1 DF, WEEKLY (QW): 50000 UNITS CAP
     Route: 048
     Dates: start: 20150115, end: 20150331
  11. VALIUM [Concomitant]
     Active Substance: DIAZEPAM
     Indication: MUSCLE SPASMS
     Dosage: 5 MG, 4X/DAY (QID)
     Route: 048
     Dates: start: 20150325
  12. LIDODERM [Concomitant]
     Active Substance: LIDOCAINE
     Indication: PRODUCT USED FOR UNKNOWN INDICATION
     Dosage: 2 DF, ONCE DAILY (QD): 5% PATCH
     Route: 023
     Dates: start: 20150325, end: 20150331
  13. ZOFRAN [Concomitant]
     Active Substance: ONDANSETRON HYDROCHLORIDE
     Indication: PRODUCT USED FOR UNKNOWN INDICATION
     Dosage: 4 MG, 3X/DAY (TID)
     Route: 048
     Dates: start: 20150325, end: 20150506
  14. HYDROCORTISONE. [Concomitant]
     Active Substance: HYDROCORTISONE
     Indication: IMMUNOSUPPRESSION
     Dosage: UNK
     Dates: start: 201503
  15. DELTASONE [Concomitant]
     Active Substance: PREDNISONE
     Dosage: UNK
     Dates: start: 2012, end: 201601
  16. CERTOLIZUMAB PEGOL CD [Suspect]
     Active Substance: CERTOLIZUMAB PEGOL
     Dosage: 200 MG, UNK
     Dates: start: 20121024, end: 20121024
  17. OXYCODONE [Concomitant]
     Active Substance: OXYCODONE
     Indication: PAIN
     Dosage: 5 MG, AS NEEDED (PRN)
     Route: 048
     Dates: start: 20150325
  18. ZOSYN [Concomitant]
     Active Substance: PIPERACILLIN SODIUM\TAZOBACTAM SODIUM
     Indication: PRODUCT USED FOR UNKNOWN INDICATION
     Dosage: 13.5 MG, ONCE DAILY (QD)
     Route: 042
     Dates: start: 20150325, end: 20150506
  19. ENTOCORT EC [Concomitant]
     Active Substance: BUDESONIDE
     Indication: PRODUCT USED FOR UNKNOWN INDICATION
     Dosage: UNK
     Dates: start: 20120123
  20. TYLENOL [Concomitant]
     Active Substance: ACETAMINOPHEN
     Indication: PAIN
     Dosage: 1000 MG, 4X/DAY (QID): (500 MG TAB 2 TABS QID)
     Route: 048
     Dates: start: 20150325
  21. COLACE [Concomitant]
     Active Substance: DOCUSATE SODIUM
     Indication: CONSTIPATION
     Dosage: 100 MG, 2X/DAY (BID) AS NEEDED
     Route: 048
     Dates: start: 20150325, end: 20150610
  22. HEPARIN [Concomitant]
     Active Substance: HEPARIN SODIUM
  23. DELTASONE [Concomitant]
     Active Substance: PREDNISONE
     Dosage: 20 MG, AD
     Route: 048
     Dates: start: 20131025
  24. VITAMIN B12 [Concomitant]
     Active Substance: CYANOCOBALAMIN
     Indication: PRODUCT USED FOR UNKNOWN INDICATION
     Dosage: 1000 MCG/ML, MONTHLY (QM)
     Dates: start: 20150226
  25. CIPROFLOXACIN. [Concomitant]
     Active Substance: CIPROFLOXACIN
     Indication: CROHN^S DISEASE
     Dosage: UNK
     Dates: start: 20100313, end: 20100530
  26. CIPROFLOXACIN. [Concomitant]
     Active Substance: CIPROFLOXACIN
     Dosage: UNK
     Route: 042
     Dates: start: 201503
  27. FLAGYL [Concomitant]
     Active Substance: METRONIDAZOLE\METRONIDAZOLE HYDROCHLORIDE
     Dosage: UNK
     Route: 042
     Dates: start: 201503

REACTIONS (2)
  - Abdominal abscess [Recovered/Resolved]
  - Large intestine perforation [Recovered/Resolved]

NARRATIVE: CASE EVENT DATE: 20150311
